FAERS Safety Report 7285056-3 (Version None)
Quarter: 2011Q1

REPORT INFORMATION
  Report Type: 
  Country: None (occurrence: None)
  Receive Date: 20110210
  Receipt Date: 20110131
  Transmission Date: 20110831
  Serious: Yes (Other)
  Sender: FDA-Public Use
  Company Number: US-BAYER-2011-012385

PATIENT
  Sex: Male

DRUGS (3)
  1. INTERFERON BETA-1B [Suspect]
     Dosage: UNK
     Dates: start: 20070725, end: 20101220
  2. INTERFERON BETA-1B [Suspect]
     Indication: MULTIPLE SCLEROSIS
     Dosage: UNK
     Dates: start: 20061228, end: 20070420
  3. INTERFERON BETA-1B [Suspect]
     Dosage: UNK
     Dates: start: 20070517, end: 20070623

REACTIONS (2)
  - DECUBITUS ULCER [None]
  - WEIGHT DECREASED [None]
